FAERS Safety Report 20526084 (Version 2)
Quarter: 2022Q1

REPORT INFORMATION
  Report Type: Other
  Country: CA (occurrence: CA)
  Receive Date: 20220228
  Receipt Date: 20220307
  Transmission Date: 20220424
  Serious: Yes (Hospitalization, Other)
  Sender: FDA-Public Use
  Company Number: CA-002147023-NVSC2020CA092301

PATIENT
  Age: 21 Year
  Sex: Female

DRUGS (4)
  1. XOLAIR [Suspect]
     Active Substance: OMALIZUMAB
     Indication: Chronic spontaneous urticaria
     Route: 058
     Dates: start: 20200304
  2. XOLAIR [Suspect]
     Active Substance: OMALIZUMAB
     Route: 058
     Dates: start: 20201210
  3. EPIPEN [Concomitant]
     Active Substance: EPINEPHRINE
  4. MONTELUKAST [Concomitant]
     Active Substance: MONTELUKAST SODIUM

REACTIONS (13)
  - Angioedema [Unknown]
  - Hypersensitivity [Unknown]
  - Nasal congestion [Unknown]
  - Epistaxis [Unknown]
  - Dyspnoea [Unknown]
  - Sneezing [Unknown]
  - Anaphylactic shock [Unknown]
  - Swelling face [Unknown]
  - Eye swelling [Unknown]
  - Eye pruritus [Unknown]
  - Nausea [Recovered/Resolved]
  - Dizziness [Recovered/Resolved]
  - Urticaria [Unknown]

NARRATIVE: CASE EVENT DATE: 20220101
